FAERS Safety Report 6270805 (Version 4)
Quarter: 2020Q3

REPORT INFORMATION
  Report Type: Report from Study
  Country: FR (occurrence: FR)
  Receive Date: 20070326
  Receipt Date: 20080819
  Transmission Date: 20201105
  Serious: Yes (Life-Threatening, Hospitalization, Disabling)
  Sender: FDA-Public Use
  Company Number: FR-JNJFOC-20060602692

PATIENT
  Age: 63 Year
  Sex: Male
  Weight: 50 kg

DRUGS (44)
  1. DARUNAVIR [Suspect]
     Active Substance: DARUNAVIR
     Indication: HIV INFECTION
     Route: 048
  2. FUZEON [Concomitant]
     Active Substance: ENFUVIRTIDE
     Indication: HIV INFECTION
     Route: 058
  3. SPASFON [PHLOROGLUCINOL;TRIMETHYLPHLOROGLUCINOL] [Concomitant]
     Active Substance: PHLOROGLUCINOL\1,3,5-TRIMETHOXYBENZENE
     Route: 042
  4. PERIKABIVEN [Concomitant]
     Active Substance: ALANINE\ARGININE\ASPARTIC ACID\CALCIUM CHLORIDE\DEXTROSE MONOHYDRATE\GLUTAMIC ACID\GLYCINE\HISTIDINE\ISOLEUCINE\LEUCINE\LYSINE HYDROCHLORIDE\MAGNESIUM SULFATE HEPTAHYDRATE\METHIONINE\PHENYLALANINE\POTASSIUM CHLORIDE\PROLINE\SERINE\SODIUM ACETATE\SODIUM GLYCEROPHOSPHATE ANHYDROUS\SOYBEAN OIL\THREONIN
     Indication: MALNUTRITION
     Route: 042
  5. DARUNAVIR [Suspect]
     Active Substance: DARUNAVIR
     Indication: HIV INFECTION
     Dosage: ONLY 1 EVENING DOSE ON 12?APR?2006;ONLY 1 DOSE BID TAKEN 13 TO 15?APR?2006 DUE TO PATIENT ERROR.
     Route: 048
  6. ZERIT [Concomitant]
     Active Substance: STAVUDINE
     Route: 048
  7. ASPIRIN. [Concomitant]
     Active Substance: ASPIRIN
     Route: 048
  8. ASPIRIN. [Concomitant]
     Active Substance: ASPIRIN
     Indication: CEREBROVASCULAR ACCIDENT
     Dosage: STARTED PRE?TRIAL
     Route: 048
  9. LANTUS [Concomitant]
     Active Substance: INSULIN GLARGINE
     Dosage: STARTED PRE?TRIAL
     Route: 058
  10. NITROGLYCERIN. [Concomitant]
     Active Substance: NITROGLYCERIN
     Indication: ANGINA PECTORIS
     Route: 048
  11. MAG 2 [Concomitant]
     Active Substance: MAGNESIUM
     Indication: HYPOMAGNESAEMIA
     Route: 048
  12. CREON [Concomitant]
     Active Substance: PANCRELIPASE AMYLASE\PANCRELIPASE LIPASE\PANCRELIPASE PROTEASE
     Indication: PANCREATIC FAILURE
     Route: 048
  13. SANDOSTATIN [Concomitant]
     Active Substance: OCTREOTIDE ACETATE
     Route: 042
  14. SANDOSTATIN [Concomitant]
     Active Substance: OCTREOTIDE ACETATE
     Route: 042
  15. SANDOSTATIN [Concomitant]
     Active Substance: OCTREOTIDE ACETATE
     Route: 042
  16. ZERIT [Concomitant]
     Active Substance: STAVUDINE
     Indication: HIV INFECTION
     Route: 048
  17. NICORANDIL [Concomitant]
     Active Substance: NICORANDIL
     Indication: ANGINA PECTORIS
     Dosage: STARTED PRE?TRIAL
     Route: 048
  18. TRIFLUCAN [Concomitant]
     Active Substance: FLUCONAZOLE
     Indication: DYSPHAGIA
     Route: 048
  19. FUCIDINE [Concomitant]
     Indication: FOLLICULITIS
     Route: 061
  20. FUNGIZONE [Concomitant]
     Active Substance: AMPHOTERICIN B
     Indication: ORAL CANDIDIASIS
     Route: 048
  21. LOPERAMIDE [Concomitant]
     Active Substance: LOPERAMIDE
     Indication: DIARRHOEA
     Route: 048
  22. LANTUS [Concomitant]
     Active Substance: INSULIN GLARGINE
     Dosage: STARTED PRE?TRIAL
     Route: 058
  23. SANDOSTATIN [Concomitant]
     Active Substance: OCTREOTIDE ACETATE
     Indication: DIARRHOEA
     Route: 042
  24. ALDACTONE [Concomitant]
     Active Substance: SPIRONOLACTONE
     Indication: HEPATIC CIRRHOSIS
     Route: 048
  25. LOPERAMIDE [Concomitant]
     Active Substance: LOPERAMIDE
     Route: 048
  26. ASPIRIN. [Concomitant]
     Active Substance: ASPIRIN
     Indication: ANGINA PECTORIS
     Dosage: STARTED PRE?TRIAL
     Route: 048
  27. LANTUS [Concomitant]
     Active Substance: INSULIN GLARGINE
     Indication: DIABETES MELLITUS
     Dosage: STARTED PRE?TRIAL
     Route: 058
  28. WELLVONE [Concomitant]
     Active Substance: ATOVAQUONE
     Indication: PNEUMOCYSTIS JIROVECII PNEUMONIA
     Dosage: STARTED PRE?TRIAL
     Route: 048
  29. TOCO 500 [Concomitant]
     Active Substance: .ALPHA.-TOCOPHEROL ACETATE, D-
     Indication: MITOCHONDRIAL TOXICITY
     Route: 048
  30. GRANIONS DE SELENIUM [Concomitant]
     Indication: MITOCHONDRIAL TOXICITY
     Route: 048
  31. TRIFLUCAN [Concomitant]
     Active Substance: FLUCONAZOLE
     Indication: ORAL CANDIDIASIS
     Route: 048
  32. TIORFAN [Concomitant]
     Active Substance: RACECADOTRIL
     Indication: DIARRHOEA
     Route: 048
  33. PLACEBO [Suspect]
     Active Substance: UNSPECIFIED INGREDIENT
     Indication: HIV INFECTION
     Dosage: ONLY 1 EVENING DOSE ON 12?APR?2006;ONLY 1 DOSE BID TAKEN 13 TO 15?APR?2006 DUE TO PATIENT ERROR.
     Route: 048
  34. RITONAVIR. [Suspect]
     Active Substance: RITONAVIR
     Indication: HIV INFECTION
     Route: 048
  35. EPIVIR [Concomitant]
     Active Substance: LAMIVUDINE
     Indication: HIV INFECTION
     Route: 048
  36. LOPERAMIDE [Concomitant]
     Active Substance: LOPERAMIDE
     Route: 048
  37. HYDROSOL POLYVITAMINE ROCHE [Concomitant]
     Indication: MITOCHONDRIAL TOXICITY
     Route: 048
  38. TIORFAN [Concomitant]
     Active Substance: RACECADOTRIL
     Route: 048
  39. POTASSIUM CHLORIDE\SODIUM BICARBONATE\SODIUM CHLORIDE\SODIUM SULFATE [Concomitant]
     Active Substance: POTASSIUM CHLORIDE\SODIUM BICARBONATE\SODIUM CHLORIDE\SODIUM SULFATE
     Indication: COLONOSCOPY
     Route: 048
  40. BISOPROLOL [Concomitant]
     Active Substance: BISOPROLOL
     Indication: HYPERTENSION
     Dosage: STARTED PRE?TRIAL
     Route: 048
  41. LANTUS [Concomitant]
     Active Substance: INSULIN GLARGINE
     Dosage: STARTED PRE?TRIAL
     Route: 058
  42. ROVALCYTE [Concomitant]
     Active Substance: VALGANCICLOVIR HYDROCHLORIDE
     Indication: CYTOMEGALOVIRUS INFECTION
     Dosage: STARTED PRE?TRIAL
     Route: 048
  43. LOVENOX [Concomitant]
     Active Substance: ENOXAPARIN SODIUM
     Indication: EMBOLISM ARTERIAL
     Route: 058
  44. LASIX [Concomitant]
     Active Substance: FUROSEMIDE
     Indication: HEPATIC CIRRHOSIS
     Route: 048

REACTIONS (18)
  - Angina pectoris [None]
  - Polyuria [None]
  - Electrocardiogram QRS complex prolonged [None]
  - Oedema [None]
  - Hepatic cirrhosis [Recovered/Resolved]
  - Pancreatic failure [Recovered/Resolved]
  - Anaemia [Recovered/Resolved]
  - Fatigue [None]
  - Cardiac murmur [None]
  - Gastric ulcer [None]
  - Blood iron decreased [None]
  - Coronary artery stenosis [Recovered/Resolved]
  - Splenomegaly [None]
  - Oral candidiasis [None]
  - Mitral valve incompetence [None]
  - Ascites [None]
  - Steatorrhoea [None]
  - Serum ferritin increased [None]

NARRATIVE: CASE EVENT DATE: 20060605
